FAERS Safety Report 5367685-7 (Version None)
Quarter: 2007Q2

REPORT INFORMATION
  Report Type: 
  Country: None (occurrence: None)
  Receive Date: 20070622
  Receipt Date: 20070221
  Transmission Date: 20071010
  Serious: No
  Sender: FDA-Public Use
  Company Number: US-ASTRAZENECA-2007UW03353

PATIENT
  Age: 82 Year
  Sex: Female
  Weight: 72.6 kg

DRUGS (1)
  1. PULMICORT [Suspect]
     Indication: EMPHYSEMA
     Route: 055
     Dates: start: 20070101

REACTIONS (2)
  - DRUG INEFFECTIVE [None]
  - MEDICATION ERROR [None]
